FAERS Safety Report 13646517 (Version 7)
Quarter: 2020Q1

REPORT INFORMATION
  Report Type: Spontaneous
  Country: US (occurrence: US)
  Receive Date: 20170613
  Receipt Date: 20200114
  Transmission Date: 20200409
  Serious: Yes (Other)
  Sender: FDA-Public Use
  Company Number: US-PFIZER INC-2017252616

PATIENT
  Age: 74 Year
  Sex: Female
  Weight: 84 kg

DRUGS (4)
  1. IBRANCE [Suspect]
     Active Substance: PALBOCICLIB
     Indication: BREAST CANCER METASTATIC
     Dosage: 100 MG, CYCLIC (DAY 1-28 EVERY 28 DAYS)
     Route: 048
     Dates: start: 20170522
  2. IBRANCE [Suspect]
     Active Substance: PALBOCICLIB
     Dosage: 100 MG, CYCLIC(DAYS 1-21 EVERY 28 DAYS)
     Route: 048
     Dates: start: 20180604
  3. IBRANCE [Suspect]
     Active Substance: PALBOCICLIB
     Dosage: 75 MG, CYCLIC (DAILY 1-21 Q 28 DAYS)
     Route: 048
     Dates: start: 20180604, end: 201806
  4. IBRANCE [Suspect]
     Active Substance: PALBOCICLIB
     Dosage: 75 MG, CYCLIC (DAILY 1-21 Q 28 DAYS)
     Route: 048
     Dates: start: 20180604, end: 201806

REACTIONS (12)
  - Product dose omission [Unknown]
  - Thrombosis [Unknown]
  - Bone pain [Unknown]
  - Nausea [Unknown]
  - Renal disorder [Unknown]
  - Urinary tract infection [Unknown]
  - Pulmonary embolism [Unknown]
  - Malaise [Unknown]
  - Pulmonary thrombosis [Unknown]
  - Pyrexia [Unknown]
  - Diarrhoea [Unknown]
  - Alopecia [Unknown]

NARRATIVE: CASE EVENT DATE: 201806
